FAERS Safety Report 11891224 (Version 1)
Quarter: 2016Q1

REPORT INFORMATION
  Report Type: Spontaneous
  Country: US (occurrence: None)
  Receive Date: 20160105
  Receipt Date: 20160105
  Transmission Date: 20160526
  Serious: Yes (Other)
  Sender: FDA-Public Use
  Company Number: None

PATIENT
  Age: 62 Year
  Sex: Male
  Weight: 79 kg

DRUGS (4)
  1. ATORVASTATIN [Concomitant]
     Active Substance: ATORVASTATIN
  2. PROPOFOL 10 MG/ML FRESENIUS KABI [Suspect]
     Active Substance: PROPOFOL
     Indication: ANAESTHESIA
     Dosage: BOLUS/INFUSION
     Route: 042
     Dates: start: 201512, end: 20151204
  3. GOLYTELY [Concomitant]
     Active Substance: POLYETHYLENE GLYCOL 3350\POTASSIUM CHLORIDE\SODIUM BICARBONATE\SODIUM CHLORIDE\SODIUM SULFATE ANHYDROUS
  4. PROPOFOL 10 MG/ML FRESENIUS KABI [Suspect]
     Active Substance: PROPOFOL
     Indication: COLONOSCOPY
     Dosage: BOLUS/INFUSION
     Route: 042
     Dates: start: 201512, end: 20151204

REACTIONS (2)
  - Carotid artery disease [None]
  - Cerebral infarction [None]

NARRATIVE: CASE EVENT DATE: 20151207
